FAERS Safety Report 10178224 (Version 1)
Quarter: 2014Q2

REPORT INFORMATION
  Report Type: Spontaneous
  Country: US (occurrence: None)
  Receive Date: 20140516
  Receipt Date: 20140516
  Transmission Date: 20141212
  Serious: Yes (Other)
  Sender: FDA-Public Use
  Company Number: None

PATIENT
  Age: 70 Year
  Sex: Male
  Weight: 68.49 kg

DRUGS (15)
  1. LEVOFLOXACIN [Suspect]
     Indication: BRONCHITIS
     Route: 048
  2. LEVOFLOXACIN [Suspect]
     Indication: RESPIRATORY DISORDER
     Route: 048
  3. ALBUTEROL HFA [Concomitant]
  4. PRAVASTATION [Concomitant]
  5. SPRIVIA [Concomitant]
  6. BIOTIN [Concomitant]
  7. VITAMIN D [Concomitant]
  8. SAW PALMETTO [Concomitant]
  9. MSM [Concomitant]
  10. FISH OIL [Concomitant]
  11. CALCIUM + D [Concomitant]
  12. MULTIVITAMIN + MINERALS [Concomitant]
  13. MAGNOSIUM [Concomitant]
  14. BILBERRY PLUS [Concomitant]
  15. LUTEIN [Concomitant]

REACTIONS (1)
  - Tendon rupture [None]
